FAERS Safety Report 12266646 (Version 1)
Quarter: 2016Q2

REPORT INFORMATION
  Report Type: Spontaneous
  Country: US (occurrence: US)
  Receive Date: 20160414
  Receipt Date: 20160414
  Transmission Date: 20160815
  Serious: No
  Sender: FDA-Public Use
  Company Number: US-TEVA-565097USA

PATIENT
  Sex: Female

DRUGS (1)
  1. GABAPENTIN. [Suspect]
     Active Substance: GABAPENTIN
     Indication: NECK INJURY
     Route: 065
     Dates: start: 2013, end: 201504

REACTIONS (3)
  - Joint swelling [Unknown]
  - Contusion [Unknown]
  - Peripheral swelling [Unknown]
